FAERS Safety Report 8676495 (Version 2)
Quarter: 2013Q4

REPORT INFORMATION
  Report Type: Spontaneous
  Country: JP (occurrence: JP)
  Receive Date: 20120720
  Receipt Date: 20131106
  Transmission Date: 20140711
  Serious: Yes (Hospitalization)
  Sender: FDA-Public Use
  Company Number: JP-009507513-1204USA00875

PATIENT
  Age: 38 Year
  Sex: Female

DRUGS (23)
  1. GLACTIV [Suspect]
     Indication: TYPE 2 DIABETES MELLITUS
     Dosage: 50 MG, QD
     Route: 048
  2. ETIZOLAM [Concomitant]
  3. LEVOMEPROMAZINE MALEATE [Concomitant]
  4. NITRAZEPAM [Concomitant]
  5. RISPERIDONE [Concomitant]
  6. PAROXETINE HYDROCHLORIDE [Concomitant]
  7. LORAZEPAM [Concomitant]
  8. VALPROATE SODIUM [Concomitant]
  9. LOXOPROFEN SODIUM [Concomitant]
  10. TIZANIDINE HYDROCHLORIDE [Concomitant]
  11. BEZAFIBRATE [Concomitant]
  12. ALLOPURINOL [Concomitant]
  13. ATENOLOL [Concomitant]
  14. TOPIRAMATE [Concomitant]
  15. MINOCYCLINE HYDROCHLORIDE [Concomitant]
  16. CODEINE PHOSPHATE [Concomitant]
  17. THEOPHYLLINE [Concomitant]
  18. ERGOTAMINE TARTRATE [Concomitant]
  19. SENNOSIDES [Concomitant]
  20. LACTOMIN [Concomitant]
  21. MAGNESIUM OXIDE [Concomitant]
  22. LOPERAMIDE HYDROCHLORIDE [Concomitant]
  23. TAKA-DIASTASE [Concomitant]

REACTIONS (11)
  - Rhabdomyolysis [Recovering/Resolving]
  - Altered state of consciousness [Recovering/Resolving]
  - Pyrexia [Recovering/Resolving]
  - Decubitus ulcer [Recovering/Resolving]
  - Renal failure acute [Recovering/Resolving]
  - Hypoxia [Recovering/Resolving]
  - Anuria [Recovering/Resolving]
  - Acidosis [Recovering/Resolving]
  - Pneumonia aspiration [Recovering/Resolving]
  - Pallidotomy [Recovering/Resolving]
  - Respiratory disorder [Recovering/Resolving]
